FAERS Safety Report 11744112 (Version 1)
Quarter: 2015Q4

REPORT INFORMATION
  Report Type: Spontaneous
  Country: US (occurrence: US)
  Receive Date: 20151116
  Receipt Date: 20151116
  Transmission Date: 20160304
  Serious: Yes (Hospitalization, Other)
  Sender: FDA-Public Use
  Company Number: US-DSJP-DSU-2015-127922

PATIENT

DRUGS (3)
  1. ATIVAN [Concomitant]
     Active Substance: LORAZEPAM
     Indication: PRODUCT USED FOR UNKNOWN INDICATION
     Dosage: UNK
  2. BENICAR [Suspect]
     Active Substance: OLMESARTAN MEDOXOMIL
     Indication: HYPERTENSION
     Dosage: 20/12.5 MG, QD
     Dates: start: 20130823, end: 201501
  3. FLEXERIL [Concomitant]
     Active Substance: CYCLOBENZAPRINE HYDROCHLORIDE
     Indication: PRODUCT USED FOR UNKNOWN INDICATION
     Dosage: UNK

REACTIONS (9)
  - Gastritis [Unknown]
  - Gastrointestinal sounds abnormal [Unknown]
  - Acute kidney injury [Unknown]
  - Malabsorption [Unknown]
  - Decreased appetite [Not Recovered/Not Resolved]
  - Gastritis erosive [Unknown]
  - Renal cyst [Unknown]
  - Pyrexia [Unknown]
  - Syncope [Unknown]

NARRATIVE: CASE EVENT DATE: 20130828
